FAERS Safety Report 22033044 (Version 1)
Quarter: 2023Q1

REPORT INFORMATION
  Report Type: Spontaneous
  Country: US (occurrence: None)
  Receive Date: 20230221
  Receipt Date: 20230221
  Transmission Date: 20230418
  Serious: Yes (Death)
  Sender: FDA-Public Use
  Company Number: None

PATIENT
  Age: 69 Year
  Sex: Male

DRUGS (1)
  1. LENALIDOMIDE [Suspect]
     Active Substance: LENALIDOMIDE
     Indication: Plasma cell myeloma
     Dosage: FREQUENCY : DAILY;?
     Route: 048
     Dates: start: 20210112, end: 20221211

REACTIONS (5)
  - Influenza like illness [None]
  - Respiratory distress [None]
  - Influenza A virus test positive [None]
  - Stenotrophomonas test positive [None]
  - General physical health deterioration [None]

NARRATIVE: CASE EVENT DATE: 20221217
